FAERS Safety Report 24845937 (Version 1)
Quarter: 2025Q1

REPORT INFORMATION
  Report Type: Spontaneous
  Country: US (occurrence: US)
  Receive Date: 20250115
  Receipt Date: 20250115
  Transmission Date: 20250408
  Serious: No
  Sender: GRIFOLS
  Company Number: US-IGSA-BIG0032326

PATIENT
  Sex: Female

DRUGS (1)
  1. XEMBIFY [Suspect]
     Active Substance: HUMAN IMMUNOGLOBULIN G
     Indication: Immunodeficiency
     Dosage: 9 GRAM, Q.WK.
     Route: 058
     Dates: start: 202310

REACTIONS (4)
  - Infusion site swelling [Recovered/Resolved]
  - Infusion site discolouration [Recovered/Resolved]
  - Infusion site pruritus [Recovered/Resolved]
  - Infusion site bruising [Recovering/Resolving]
